FAERS Safety Report 5518821-0 (Version None)
Quarter: 2007Q4

REPORT INFORMATION
  Report Type: 
  Country: None (occurrence: None)
  Receive Date: 20071113
  Receipt Date: 20071031
  Transmission Date: 20080405
  Serious: Yes (Other)
  Sender: FDA-Public Use
  Company Number: E2090-00338-SPO-JP

PATIENT
  Age: 31 Year
  Sex: Female

DRUGS (1)
  1. ZONISAMIDE [Suspect]
     Dosage: 100 MG, 1 IN 1 D
     Dates: start: 20060101, end: 20060201

REACTIONS (1)
  - HYPERSENSITIVITY [None]
